FAERS Safety Report 8591126-X (Version None)
Quarter: 2012Q3

REPORT INFORMATION
  Report Type: 
  Country: None (occurrence: None)
  Receive Date: 20120813
  Receipt Date: 20120806
  Transmission Date: 20120928
  Serious: Yes (Other)
  Sender: FDA-Public Use
  Company Number: PHHY2012US068208

PATIENT
  Age: 82 Year
  Sex: Female

DRUGS (1)
  1. ASCRIPTIN - UNKNOWN FORMULA [Suspect]
     Indication: CARDIAC DISORDER
     Dosage: 1 DF DAILY
     Route: 048
     Dates: start: 19800101

REACTIONS (3)
  - MYOCARDIAL INFARCTION [None]
  - INCORRECT DRUG ADMINISTRATION DURATION [None]
  - FALL [None]
